FAERS Safety Report 7177354-9 (Version None)
Quarter: 2010Q4

REPORT INFORMATION
  Report Type: 
  Country: None (occurrence: None)
  Receive Date: 20101123
  Receipt Date: 20101011
  Transmission Date: 20110411
  Serious: No
  Sender: FDA-Public Use
  Company Number: 014634

PATIENT
  Sex: Male

DRUGS (18)
  1. CIMZIA [Suspect]
     Indication: CROHN'S DISEASE
     Dosage: 200 MG 1X/2 WEEKS SUBCUTANEOUS
     Route: 058
     Dates: start: 20100201
  2. PROTONIX [Concomitant]
  3. DIAZEPAM [Concomitant]
  4. LEXAPRO [Concomitant]
  5. KLOR-CON [Concomitant]
  6. PROMETHAZINE [Concomitant]
  7. FLONASE [Concomitant]
  8. MECLIZINE /00072801/ [Concomitant]
  9. OXYCODONE [Concomitant]
  10. MULTI-VITAMINS [Concomitant]
  11. XIFAXAN [Concomitant]
  12. LOPERAMIDE [Concomitant]
  13. CLARITIN-D [Concomitant]
  14. PREDNISONE [Concomitant]
  15. FLUCONAZOLE [Concomitant]
  16. MORPHINE SULPHATE BP [Concomitant]
  17. COLESTIPOL HYDROCHLORIDE [Concomitant]
  18. MAGNESIUM [Concomitant]

REACTIONS (7)
  - BALANCE DISORDER [None]
  - BODY TEMPERATURE INCREASED [None]
  - CROHN'S DISEASE [None]
  - DIARRHOEA [None]
  - NAUSEA [None]
  - ORAL PAIN [None]
  - RECTAL ABSCESS [None]
